FAERS Safety Report 8393594-5 (Version None)
Quarter: 2012Q2

REPORT INFORMATION
  Report Type: 
  Country: None (occurrence: None)
  Receive Date: 20120530
  Receipt Date: 20120523
  Transmission Date: 20120825
  Serious: Yes (Other)
  Sender: FDA-Public Use
  Company Number: US-AMGEN-USASP2012032425

PATIENT
  Age: 54 Year
  Sex: Female

DRUGS (3)
  1. TREXALL [Concomitant]
     Dosage: 15 MG, UNK
     Dates: start: 20070101
  2. VIOXX [Concomitant]
     Dosage: UNK
  3. ENBREL [Suspect]
     Indication: PSORIATIC ARTHROPATHY
     Dosage: 25 MG, 2 TIMES/WK
     Dates: start: 19990101

REACTIONS (14)
  - SINUSITIS [None]
  - TRANSIENT ISCHAEMIC ATTACK [None]
  - BLOOD PRESSURE INCREASED [None]
  - INFLUENZA LIKE ILLNESS [None]
  - PRODUCTIVE COUGH [None]
  - OROPHARYNGEAL PAIN [None]
  - RESPIRATORY TRACT CONGESTION [None]
  - BACK PAIN [None]
  - PSORIATIC ARTHROPATHY [None]
  - INFECTION [None]
  - HERPES ZOSTER [None]
  - DYSURIA [None]
  - METABOLIC DISORDER [None]
  - HYPERSENSITIVITY [None]
